FAERS Safety Report 13707396 (Version 1)
Quarter: 2017Q2

REPORT INFORMATION
  Report Type: Spontaneous
  Country: RU (occurrence: RU)
  Receive Date: 20170630
  Receipt Date: 20170630
  Transmission Date: 20170830
  Serious: Yes (Hospitalization)
  Sender: FDA-Public Use
  Company Number: RU-JNJFOC-20170626740

PATIENT
  Sex: Female

DRUGS (3)
  1. XARELTO [Suspect]
     Active Substance: RIVAROXABAN
     Indication: THROMBOSIS
     Route: 048
     Dates: start: 201701
  2. NITROFURAN [Concomitant]
     Active Substance: NITROFURANTOIN
     Indication: PRODUCT USED FOR UNKNOWN INDICATION
     Route: 065
  3. XARELTO [Suspect]
     Active Substance: RIVAROXABAN
     Indication: THROMBOSIS
     Route: 048

REACTIONS (6)
  - Dizziness [Unknown]
  - Pain in extremity [Unknown]
  - Iron deficiency anaemia [Unknown]
  - Anaemia vitamin B12 deficiency [Unknown]
  - Angina unstable [Unknown]
  - Asthenia [Unknown]

NARRATIVE: CASE EVENT DATE: 201705
